FAERS Safety Report 12349696 (Version 1)
Quarter: 2016Q2

REPORT INFORMATION
  Report Type: Spontaneous
  Country: FR (occurrence: FR)
  Receive Date: 20160510
  Receipt Date: 20160510
  Transmission Date: 20160815
  Serious: Yes (Death, Hospitalization)
  Sender: FDA-Public Use
  Company Number: FR-AUROBINDO-AUR-APL-2016-05674

PATIENT
  Age: 81 Year
  Sex: Female

DRUGS (4)
  1. FLUCONAZOLE ARROW [Suspect]
     Active Substance: FLUCONAZOLE
     Indication: FUNGAL INFECTION
     Dosage: UNK
     Route: 065
     Dates: start: 20130805
  2. SOLIRIS [Suspect]
     Active Substance: ECULIZUMAB
     Indication: HAEMOLYTIC URAEMIC SYNDROME
     Dosage: 900 MG, EVERY WEEK
     Route: 042
     Dates: start: 20130809, end: 20130830
  3. IMIPENEM AND CILASTATIN [Suspect]
     Active Substance: CILASTATIN SODIUM\IMIPENEM
     Indication: INFECTION
     Dosage: UNK
     Route: 065
     Dates: start: 20130805
  4. VFEND [Suspect]
     Active Substance: VORICONAZOLE
     Indication: BRONCHOPULMONARY ASPERGILLOSIS
     Dosage: 300 MG, DAILY
     Route: 065
     Dates: start: 20130902

REACTIONS (4)
  - Cardio-respiratory arrest [Fatal]
  - Tonic convulsion [Fatal]
  - Nervous system disorder [Fatal]
  - Hemiplegia [Fatal]

NARRATIVE: CASE EVENT DATE: 201309
